FAERS Safety Report 19455625 (Version 1)
Quarter: 2021Q2

REPORT INFORMATION
  Report Type: Report from Study
  Country: None (occurrence: US)
  Receive Date: 20210623
  Receipt Date: 20210623
  Transmission Date: 20210717
  Serious: Yes (Other)
  Sender: FDA-Public Use
  Company Number: US-ABBVIE-21K-163-3960705-00

PATIENT
  Age: 64 Year
  Sex: Female

DRUGS (1)
  1. CREON [Suspect]
     Active Substance: PANCRELIPASE AMYLASE\PANCRELIPASE LIPASE\PANCRELIPASE PROTEASE
     Indication: PRODUCT USED FOR UNKNOWN INDICATION
     Route: 048

REACTIONS (6)
  - Knee arthroplasty [Unknown]
  - Knee arthroplasty [Recovered/Resolved]
  - Medical device implantation [Unknown]
  - Cataract [Unknown]
  - Knee arthroplasty [Unknown]
  - Tenoplasty [Unknown]

NARRATIVE: CASE EVENT DATE: 20130305
